FAERS Safety Report 21528651 (Version 1)
Quarter: 2022Q4

REPORT INFORMATION
  Report Type: Report from Study
  Country: US (occurrence: US)
  Receive Date: 20221031
  Receipt Date: 20221031
  Transmission Date: 20230112
  Serious: Yes (Other)
  Sender: FDA-Public Use
  Company Number: US-BRISTOL-MYERS SQUIBB COMPANY-2022-129702

PATIENT
  Age: 58 Year
  Sex: Male
  Weight: 113.85 kg

DRUGS (4)
  1. LENALIDOMIDE [Suspect]
     Active Substance: LENALIDOMIDE
     Indication: Plasma cell myeloma
     Dosage: 10 MG, D 1-28, OF 28 DAY CYCLE
     Route: 048
     Dates: start: 20200317, end: 20200326
  2. LENALIDOMIDE [Suspect]
     Active Substance: LENALIDOMIDE
     Dosage: 10 MG, D 1-28, OF 28 DAY CYCLE
     Route: 048
     Dates: start: 20200401
  3. DARATUMUMAB [Suspect]
     Active Substance: DARATUMUMAB
     Indication: Plasma cell myeloma
     Dosage: 1800 MG, D1,8,15,22 (RESUMED FOR C1D22)
     Route: 058
     Dates: start: 20200317, end: 20200331
  4. DARATUMUMAB [Suspect]
     Active Substance: DARATUMUMAB
     Dosage: 1800 MG, D1,8,15,22 (RESUMED FOR C1D22)
     Route: 058
     Dates: start: 20200401

REACTIONS (2)
  - Dermatitis allergic [Recovered/Resolved]
  - Pyrexia [Recovered/Resolved]

NARRATIVE: CASE EVENT DATE: 20200325
